FAERS Safety Report 4850554-6 (Version None)
Quarter: 2005Q4

REPORT INFORMATION
  Report Type: 
  Country: None (occurrence: None)
  Receive Date: 20051208
  Receipt Date: 20051128
  Transmission Date: 20060501
  Serious: Yes (Life-Threatening, Hospitalization, Disabling, Other)
  Sender: FDA-Public Use
  Company Number: GXKR2005GB02060

PATIENT
  Age: 87 Year
  Sex: Female

DRUGS (4)
  1. CITALOPRAM HYDROBROMIDE [Suspect]
     Dosage: 10 MG, QD, ORAL
     Route: 048
     Dates: start: 20051020, end: 20051102
  2. BETAHISTINE                       (BETAHISTINE) [Concomitant]
  3. RISEDRONATE SODIUM                     (RISEDRONATE SODIUM) [Concomitant]
  4. SENNA                                 (SENNA, SENNA ALEXANDRINA) [Concomitant]

REACTIONS (4)
  - BLOOD SODIUM DECREASED [None]
  - CONFUSIONAL STATE [None]
  - FALL [None]
  - FEMORAL NECK FRACTURE [None]
